FAERS Safety Report 9530244 (Version 2)
Quarter: 2013Q3

REPORT INFORMATION
  Report Type: Spontaneous
  Country: NO (occurrence: NO)
  Receive Date: 20130917
  Receipt Date: 20130917
  Transmission Date: 20140515
  Serious: Yes (Hospitalization)
  Sender: FDA-Public Use
  Company Number: NO-009507513-1308NOR011433

PATIENT
  Age: 53 Year
  Sex: Male

DRUGS (4)
  1. ZOCOR [Suspect]
     Indication: CAROTID ARTERIOSCLEROSIS
     Dosage: 20 MG, QD
     Route: 048
     Dates: end: 20130615
  2. ZOCOR [Suspect]
     Indication: ARTERIOSCLEROSIS
     Route: 048
  3. ALBYL-E [Concomitant]
     Indication: ARTERIOSCLEROSIS
     Dosage: 75 MG, QD
     Route: 048
  4. ALBYL-E [Concomitant]
     Route: 048

REACTIONS (6)
  - Myalgia [Recovering/Resolving]
  - Arthralgia [Recovering/Resolving]
  - Influenza like illness [Recovered/Resolved]
  - Platelet count decreased [Recovered/Resolved]
  - Arthralgia [Recovered/Resolved]
  - White blood cell count decreased [Recovered/Resolved]
